FAERS Safety Report 13144181 (Version 3)
Quarter: 2017Q1

REPORT INFORMATION
  Report Type: Report from Study
  Country: PH (occurrence: PH)
  Receive Date: 20170124
  Receipt Date: 20170307
  Transmission Date: 20170428
  Serious: Yes (Death, Hospitalization, Other)
  Sender: FDA-Public Use
  Company Number: PHHY2017PH010622

PATIENT
  Age: 43 Year
  Sex: Female

DRUGS (1)
  1. GLIVEC [Suspect]
     Active Substance: IMATINIB MESYLATE
     Indication: CHRONIC MYELOID LEUKAEMIA
     Dosage: 600 MG, UNK
     Route: 065

REACTIONS (23)
  - Septic shock [Fatal]
  - Vasodilatation [Unknown]
  - Cardiac disorder [Unknown]
  - Haematocrit decreased [Unknown]
  - Red blood cell count decreased [Unknown]
  - Marrow hyperplasia [Unknown]
  - White blood cell count increased [Unknown]
  - Platelet count increased [Unknown]
  - Splenomegaly [Unknown]
  - Chronic myeloid leukaemia [Fatal]
  - Mean cell volume decreased [Unknown]
  - Lumbosacral radiculopathy [Unknown]
  - Hyperplasia [Unknown]
  - Pneumonia [Fatal]
  - Lymphocyte count decreased [Unknown]
  - Anaemia [Unknown]
  - Cough [Unknown]
  - Erythropoiesis abnormal [Unknown]
  - Haemoglobin decreased [Unknown]
  - Breath sounds abnormal [Unknown]
  - Dyspnoea [Unknown]
  - Megakaryocytes increased [Unknown]
  - Neutrophil count decreased [Unknown]

NARRATIVE: CASE EVENT DATE: 20160812
